FAERS Safety Report 19978967 (Version 3)
Quarter: 2021Q4

REPORT INFORMATION
  Report Type: Spontaneous
  Country: US (occurrence: US)
  Receive Date: 20211020
  Receipt Date: 20211119
  Transmission Date: 20220304
  Serious: No
  Sender: FDA-Public Use
  Company Number: US-009507513-2110USA003284

PATIENT

DRUGS (3)
  1. TEMODAR [Suspect]
     Active Substance: TEMOZOLOMIDE
     Indication: Astrocytoma, low grade
     Dosage: UNK
     Route: 048
  2. ISOTRETINOIN [Concomitant]
     Active Substance: ISOTRETINOIN
     Indication: Astrocytoma, low grade
  3. THALIDOMIDE [Concomitant]
     Active Substance: THALIDOMIDE
     Indication: Astrocytoma, low grade

REACTIONS (2)
  - Hypermutation [Unknown]
  - Product use in unapproved indication [Unknown]
